FAERS Safety Report 14300297 (Version 1)
Quarter: 2017Q4

REPORT INFORMATION
  Report Type: Spontaneous
  Country: US (occurrence: US)
  Receive Date: 20171219
  Receipt Date: 20171219
  Transmission Date: 20180321
  Serious: No
  Sender: FDA-Public Use
  Company Number: US-PFIZER INC-2017187611

PATIENT
  Age: 71 Year
  Sex: Female

DRUGS (1)
  1. GABAPENTIN. [Suspect]
     Active Substance: GABAPENTIN
     Indication: PERIPHERAL VASCULAR DISORDER
     Dosage: 300 MG, 1X/DAY
     Route: 048
     Dates: start: 2012, end: 2017

REACTIONS (1)
  - Drug ineffective for unapproved indication [Unknown]
